FAERS Safety Report 12863613 (Version 1)
Quarter: 2016Q4

REPORT INFORMATION
  Report Type: Spontaneous
  Country: US (occurrence: US)
  Receive Date: 20161019
  Receipt Date: 20161019
  Transmission Date: 20170207
  Serious: Yes (Other)
  Sender: FDA-Public Use
  Company Number: US-SAOL THERAPEUTICS-2016SAO00860

PATIENT
  Age: 65 Year
  Sex: Female

DRUGS (10)
  1. DETROL [Suspect]
     Active Substance: TOLTERODINE TARTRATE
  2. SYNTHROID [Suspect]
     Active Substance: LEVOTHYROXINE SODIUM
  3. COMPOUNDED BACLOFEN [Suspect]
     Active Substance: BACLOFEN
     Indication: POST LAMINECTOMY SYNDROME
  4. FENTANYL. [Suspect]
     Active Substance: FENTANYL
     Dosage: 11 ?G\DAY
     Route: 037
  5. LIPITOR [Suspect]
     Active Substance: ATORVASTATIN CALCIUM
  6. SOMA [Suspect]
     Active Substance: CARISOPRODOL
  7. WELLBUTRIN [Suspect]
     Active Substance: BUPROPION HYDROCHLORIDE
  8. COMPOUNDED BACLOFEN [Suspect]
     Active Substance: BACLOFEN
     Indication: PAIN
     Dosage: 428 ?G, \DAY
     Route: 037
  9. FENTANYL. [Suspect]
     Active Substance: FENTANYL
     Dosage: 10.7 ?G, \DAY
     Route: 037
  10. LISINOPRIL. [Suspect]
     Active Substance: LISINOPRIL

REACTIONS (3)
  - Therapeutic response decreased [Unknown]
  - Therapy non-responder [Unknown]
  - Off label use [Unknown]

NARRATIVE: CASE EVENT DATE: 201505
